FAERS Safety Report 7359201-5 (Version None)
Quarter: 2011Q1

REPORT INFORMATION
  Report Type: 
  Country: None (occurrence: None)
  Receive Date: 20110317
  Receipt Date: 20110315
  Transmission Date: 20110831
  Serious: Yes (Hospitalization)
  Sender: FDA-Public Use
  Company Number: US-ELI_LILLY_AND_COMPANY-US201012003194

PATIENT
  Age: 65 Year
  Sex: Female
  Weight: 126.8 kg

DRUGS (23)
  1. BYETTA [Suspect]
     Dosage: 10 UG, 2/D
     Route: 058
     Dates: start: 20070726
  2. VICTOZA [Concomitant]
     Indication: TYPE 2 DIABETES MELLITUS
     Dosage: 0.6 UG, DAILY (1/D)
     Route: 058
  3. VICTOZA [Concomitant]
     Dosage: 1.8 UG, DAILY (1/D)
     Route: 058
     Dates: end: 20101208
  4. CALCIUM 600 + D [Concomitant]
     Dosage: UNK, DAILY (1/D)
     Route: 048
     Dates: start: 20070626
  5. KLOR-CON M20 [Concomitant]
     Dosage: 1 TABLET DAILY
     Route: 048
     Dates: start: 20090310
  6. ASPIRIN [Concomitant]
     Dosage: 81 MG, DAILY (1/D)
     Route: 048
     Dates: start: 20090201
  7. LEXAPRO [Concomitant]
     Dosage: 10 MG, UNK
  8. VICTOZA [Concomitant]
     Dosage: 1.2 UG, DAILY (1/D)
     Route: 058
  9. SYNTHROID [Concomitant]
     Dosage: 50 UG, DAILY (1/D)
     Route: 048
     Dates: start: 20080211
  10. LEXAPRO [Concomitant]
     Dosage: 20 MG, DAILY (1/D)
     Route: 048
     Dates: start: 20080908
  11. OMEPRAZOLE [Concomitant]
     Indication: GASTROOESOPHAGEAL REFLUX DISEASE
     Route: 048
  12. IRON [Concomitant]
     Dosage: 18 MG, OTHER
     Route: 048
     Dates: start: 20081030
  13. NASONEX [Concomitant]
     Dosage: 50 UG, DAILY (1/D)
     Route: 045
     Dates: start: 20091113
  14. POTASSIUM [Concomitant]
     Dosage: 20 MG, DAILY (1/D)
  15. BYETTA [Suspect]
     Indication: TYPE 2 DIABETES MELLITUS
     Dosage: 5 UG, 2/D
     Route: 065
     Dates: start: 20070626, end: 20070807
  16. METOPROLOL TARTRATE [Concomitant]
     Dosage: 25 MG, DAILY (1/D)
     Route: 048
     Dates: start: 20090310
  17. COLACE [Concomitant]
     Dosage: 1 PILL ALMOST EVERY DAY
  18. CLINDAMYCIN [Concomitant]
  19. BYETTA [Suspect]
     Dosage: 10 UG, 2/D
     Route: 058
     Dates: start: 20101209
  20. LISINOPRIL [Concomitant]
     Dosage: 10 MG, DAILY (1/D)
     Route: 048
  21. MULTI-VITAMIN [Concomitant]
     Dosage: UNK, DAILY (1/D)
     Route: 048
  22. FUROSEMIDE [Concomitant]
     Dosage: 40 MG, DAILY (1/D)
     Route: 048
     Dates: start: 20090201
  23. CRESTOR [Concomitant]
     Dosage: 10 MG, OTHER
     Route: 048
     Dates: start: 20091116

REACTIONS (15)
  - MYOCARDIAL INFARCTION [None]
  - FATIGUE [None]
  - CATARACT OPERATION [None]
  - CONSTIPATION [None]
  - HIATUS HERNIA [None]
  - NAUSEA [None]
  - AORTIC VALVE DISEASE [None]
  - SYNCOPE [None]
  - INJECTION SITE PAIN [None]
  - ENDODONTIC PROCEDURE [None]
  - DYSPHAGIA [None]
  - VISUAL IMPAIRMENT [None]
  - SLEEP APNOEA SYNDROME [None]
  - ANAEMIA [None]
  - GASTROOESOPHAGEAL REFLUX DISEASE [None]
